FAERS Safety Report 21233648 (Version 1)
Quarter: 2022Q3

REPORT INFORMATION
  Report Type: Spontaneous
  Country: FR (occurrence: FR)
  Receive Date: 20220819
  Receipt Date: 20220819
  Transmission Date: 20221027
  Serious: Yes (Death, Hospitalization, Other)
  Sender: FDA-Public Use
  Company Number: None

PATIENT
  Age: 60 Year
  Sex: Male
  Weight: 63 kg

DRUGS (14)
  1. OFEV [Suspect]
     Active Substance: NINTEDANIB
     Indication: Idiopathic pulmonary fibrosis
     Route: 048
     Dates: start: 20170101, end: 20220610
  2. PANTOPRAZOLE [Concomitant]
     Active Substance: PANTOPRAZOLE
     Indication: Product used for unknown indication
  3. AVODART 0,5 mg, soft capsule [Concomitant]
     Indication: Product used for unknown indication
  4. HYPERIUM 1 mg, tablet [Concomitant]
     Indication: Product used for unknown indication
  5. OMEXEL L.P. 0,4 mg, film-coated sustained-release tablet [Concomitant]
     Indication: Product used for unknown indication
  6. UVEDOSE 100 000 UI, drinkable solution in ampoule [Concomitant]
     Indication: Product used for unknown indication
     Dosage: 100 000 UI, DRINKABLE SOLUTION IN AMPOULE
  7. CELLCEPT 500 mg, tablet/250 mg, capsule [Concomitant]
     Indication: Product used for unknown indication
  8. CELLCEPT 500 mg, tablet/250 mg, capsule [Concomitant]
  9. GAVISCON [Concomitant]
     Active Substance: ALUMINUM HYDROXIDE\MAGNESIUM CARBONATE
     Indication: Product used for unknown indication
  10. APROVEL 75 mg, tablet [Concomitant]
     Indication: Product used for unknown indication
  11. TADALAFIL [Concomitant]
     Active Substance: TADALAFIL
     Indication: Product used for unknown indication
  12. ULTIBRO BREEZHALER 85 micrograms/43 micrograms, [Concomitant]
     Indication: Product used for unknown indication
     Dosage: 85 MICROGRAMS/43 MICROGRAMS, POWDER FOR INHALATION CAPSULE
  13. PROGRAF 1 mg, capsule [Concomitant]
     Indication: Product used for unknown indication
  14. TIORFAN 100 mg, capsule [Concomitant]
     Indication: Product used for unknown indication

REACTIONS (2)
  - Death [Fatal]
  - Duodenal perforation [Recovering/Resolving]

NARRATIVE: CASE EVENT DATE: 20220510
